FAERS Safety Report 5060783-7 (Version None)
Quarter: 2006Q2

REPORT INFORMATION
  Report Type: 
  Country: None (occurrence: None)
  Receive Date: 20060630
  Receipt Date: 20060103
  Transmission Date: 20061013
  Serious: Yes (Hospitalization, Other)
  Sender: FDA-Public Use
  Company Number: 2006-01-0112

PATIENT
  Age: 92 Year
  Sex: Male

DRUGS (11)
  1. ALBUTEROL [Suspect]
     Indication: NASOPHARYNGITIS
     Dosage: ORAL AER INH
     Route: 055
  2. ALBUTEROL [Suspect]
     Indication: NASOPHARYNGITIS
     Dosage: INHALATION
  3. METOPROLOL UNKNOWN [Concomitant]
  4. FINASTERIDE UNKNOWN [Concomitant]
  5. ESOMEPRAZOLE UNKNOWN [Concomitant]
  6. FUROSEMIDE [Concomitant]
  7. TAMSULOSIN UNKNOWN [Concomitant]
  8. ASPIRIN UNKNOWN [Concomitant]
  9. GUAIFENESIN UNKNOWN [Concomitant]
  10. BIMATOPROST UNKNOWN [Concomitant]
  11. ANTIBIOTIC UNKNOWN [Concomitant]

REACTIONS (1)
  - BRONCHOSPASM PARADOXICAL [None]
